FAERS Safety Report 5564514-3 (Version None)
Quarter: 2007Q4

REPORT INFORMATION
  Report Type: 
  Country: None (occurrence: None)
  Receive Date: 20071212
  Receipt Date: 20071130
  Transmission Date: 20080405
  Serious: Yes (Hospitalization)
  Sender: FDA-Public Use
  Company Number: 238684K07USA

PATIENT
  Age: 41 Year
  Sex: Female

DRUGS (4)
  1. REBIF [Suspect]
     Indication: MULTIPLE SCLEROSIS
     Dosage: 44 MCG, 3 IN 1 WEEKS, SUBCUTANEOUS
     Route: 058
     Dates: start: 20070709
  2. LEVOTHYROXINE SODIUM [Concomitant]
  3. ACCUPRIL [Concomitant]
  4. AMLODIPINE [Concomitant]

REACTIONS (6)
  - ANAEMIA [None]
  - IMPAIRED HEALING [None]
  - INCISION SITE COMPLICATION [None]
  - MENORRHAGIA [None]
  - OVARIAN CYST [None]
  - WOUND INFECTION [None]
